FAERS Safety Report 25994951 (Version 1)
Quarter: 2025Q4

REPORT INFORMATION
  Report Type: Spontaneous
  Country: US (occurrence: US)
  Receive Date: 20251104
  Receipt Date: 20251104
  Transmission Date: 20260117
  Serious: No
  Sender: IPSEN BIOPHARMACEUTICALS, INC.
  Company Number: US-IPSEN Group, Research and Development-2025-27005

PATIENT
  Age: 73 Year
  Sex: Female

DRUGS (1)
  1. IQIRVO [Suspect]
     Active Substance: ELAFIBRANOR
     Indication: Primary biliary cholangitis
     Dosage: 80 MG DAILY?SECONDARY LOT: M1003M5, EXPIRY DATE: 31-OCT-2027
     Route: 048
     Dates: start: 202508, end: 2025

REACTIONS (1)
  - Product ineffective [Unknown]

NARRATIVE: CASE EVENT DATE: 20250101
